FAERS Safety Report 7633726-7 (Version None)
Quarter: 2011Q3

REPORT INFORMATION
  Report Type: 
  Country: None (occurrence: None)
  Receive Date: 20110718
  Receipt Date: 20110711
  Transmission Date: 20111222
  Serious: Yes (Other)
  Sender: FDA-Public Use
  Company Number: ACO_25477_2011

PATIENT
  Age: 63 Year
  Sex: Male

DRUGS (5)
  1. AMPYRA [Suspect]
     Indication: MULTIPLE SCLEROSIS
     Dosage: 10 MG, BID, ORAL
     Route: 048
     Dates: start: 20110201, end: 20110101
  2. NUVIGIL [Concomitant]
  3. TRILEPTAL [Concomitant]
  4. BACLOFEN [Concomitant]
  5. COPAXONE [Concomitant]

REACTIONS (1)
  - DEEP VEIN THROMBOSIS [None]
